FAERS Safety Report 9916193 (Version 1)
Quarter: 2014Q1

REPORT INFORMATION
  Report Type: Spontaneous
  Country: US (occurrence: US)
  Receive Date: 20140221
  Receipt Date: 20140221
  Transmission Date: 20141002
  Serious: Yes (Death)
  Sender: FDA-Public Use
  Company Number: US-BAYER-2014-024830

PATIENT
  Sex: 0

DRUGS (1)
  1. ALEVE CAPLET [Suspect]

REACTIONS (1)
  - Gastric haemorrhage [Fatal]
